FAERS Safety Report 10136664 (Version 1)
Quarter: 2014Q2

REPORT INFORMATION
  Report Type: Spontaneous
  Country: FR (occurrence: None)
  Receive Date: 20140425
  Receipt Date: 20140425
  Transmission Date: 20141212
  Serious: Yes (Other)
  Sender: FDA-Public Use
  Company Number: FK201401409

PATIENT
  Age: 89 Year
  Sex: Female

DRUGS (4)
  1. LEVOFLOXACIN KABI (NOT SPECIFIED) (LEVOFLOXACIN) (LEVOFLOXACIN) [Suspect]
     Indication: BRONCHITIS
     Route: 042
     Dates: start: 20140317, end: 20140323
  2. METRONIDAZOLE (METRONIDAZOLE) [Suspect]
     Indication: BRONCHITIS
     Route: 042
     Dates: start: 20140318, end: 20140324
  3. TOPALGIC LP (TRAMADOL HYDROCHLORIDE) (TRAMADOL HYDROCHLORIDE) [Suspect]
     Indication: BRONCHITIS
     Dates: end: 20140324
  4. BIPERIDYS (DOMPERIDONE) (DOMPERIDONE) [Suspect]
     Indication: BRONCHITIS
     Dates: end: 20140324

REACTIONS (3)
  - Myoclonus [None]
  - Encephalopathy [None]
  - Hallucination, visual [None]
